FAERS Safety Report 8964876 (Version 1)
Quarter: 2012Q4

REPORT INFORMATION
  Report Type: 
  Country: CN (occurrence: CN)
  Receive Date: 20121213
  Receipt Date: 20121213
  Transmission Date: 20130627
  Serious: Yes (Other)
  Sender: FDA-Public Use
  Company Number: PHHY2012CN108904

PATIENT
  Age: 24 Year
  Sex: Male
  Weight: 83 kg

DRUGS (1)
  1. CICLOSPORIN [Suspect]
     Indication: APLASTIC ANAEMIA
     Dosage: 250 mg, BID
     Route: 048
     Dates: start: 20110708, end: 20110811

REACTIONS (5)
  - Grand mal convulsion [Recovering/Resolving]
  - Dizziness [Recovering/Resolving]
  - Eye movement disorder [Recovering/Resolving]
  - Bruxism [Recovering/Resolving]
  - Convulsion [Recovering/Resolving]
